FAERS Safety Report 12706064 (Version 2)
Quarter: 2016Q3

REPORT INFORMATION
  Report Type: Spontaneous
  Country: US (occurrence: US)
  Receive Date: 20160901
  Receipt Date: 20160901
  Transmission Date: 20161109
  Serious: No
  Sender: FDA-Public Use
  Company Number: US-JAZZ-2016-US-007777

PATIENT
  Sex: Female

DRUGS (31)
  1. HYDROCHLOROTHIAZIDE. [Concomitant]
     Active Substance: HYDROCHLOROTHIAZIDE
  2. VITAMIN B COMPLEX [Concomitant]
     Active Substance: CYANOCOBALAMIN\DEXPANTHENOL\NIACINAMIDE\PYRIDOXINE HYDROCHLORIDE\RIBOFLAVIN 5^-PHOSPHATE SODIUM\THIAMINE HYDROCHLORIDE\VITAMIN B COMPLEX
  3. CALCIUM 600+D [Concomitant]
     Active Substance: CALCIUM\VITAMIN D
  4. IRON [Concomitant]
     Active Substance: IRON
  5. SPIRIVA [Concomitant]
     Active Substance: TIOTROPIUM BROMIDE MONOHYDRATE
  6. HUMULIN N [Concomitant]
     Active Substance: INSULIN HUMAN
  7. GLUCOSAMINE AND CHONDROITIN [Concomitant]
     Active Substance: CHONDROITIN SULFATE (BOVINE)\GLUCOSAMINE HYDROCHLORIDE
  8. MIRALAX [Concomitant]
     Active Substance: POLYETHYLENE GLYCOL 3350
  9. VITAMIN C [Concomitant]
     Active Substance: ASCORBIC ACID
  10. XYREM [Suspect]
     Active Substance: SODIUM OXYBATE
     Dosage: 3 G, BID
     Route: 048
     Dates: start: 201502
  11. DEXILANT [Concomitant]
     Active Substance: DEXLANSOPRAZOLE
  12. VITAMIN D [Concomitant]
     Active Substance: CHOLECALCIFEROL
  13. LOSARTAN POTASSIUM. [Concomitant]
     Active Substance: LOSARTAN POTASSIUM
  14. METFORMIN HCL [Concomitant]
     Active Substance: METFORMIN HYDROCHLORIDE
  15. SIMVASTATIN. [Concomitant]
     Active Substance: SIMVASTATIN
  16. NOVOLIN [Concomitant]
     Active Substance: INSULIN HUMAN
  17. XYREM [Suspect]
     Active Substance: SODIUM OXYBATE
     Dosage: DOSE ADJUSTMENT
     Route: 048
  18. FISH OIL [Concomitant]
     Active Substance: FISH OIL
  19. METHYLPHENIDATE. [Concomitant]
     Active Substance: METHYLPHENIDATE
  20. VYVANSE [Concomitant]
     Active Substance: LISDEXAMFETAMINE DIMESYLATE
  21. CLONAZEPAM. [Concomitant]
     Active Substance: CLONAZEPAM
  22. VALACYCLOVIR [Concomitant]
     Active Substance: VALACYCLOVIR HYDROCHLORIDE
  23. WELLBUTRIN [Concomitant]
     Active Substance: BUPROPION HYDROCHLORIDE
  24. XYREM [Suspect]
     Active Substance: SODIUM OXYBATE
     Indication: NARCOLEPSY
     Dosage: 2.25 G, BID
     Route: 048
     Dates: start: 201409, end: 201410
  25. PILOCARPINE HCL [Concomitant]
     Active Substance: PILOCARPINE HYDROCHLORIDE
  26. ASPIRIN. [Concomitant]
     Active Substance: ASPIRIN
  27. FAMOTIDINE. [Concomitant]
     Active Substance: FAMOTIDINE
  28. FLUOXETINE [Concomitant]
     Active Substance: FLUOXETINE HYDROCHLORIDE
  29. PROBIOTIC [Concomitant]
     Active Substance: PROBIOTICS NOS
  30. ADVAIR HFA [Concomitant]
     Active Substance: FLUTICASONE PROPIONATE\SALMETEROL XINAFOATE
  31. MULTIVITAMINS [Concomitant]
     Active Substance: VITAMINS

REACTIONS (2)
  - Nasopharyngitis [Unknown]
  - Arthralgia [Not Recovered/Not Resolved]
